FAERS Safety Report 5444563-6 (Version None)
Quarter: 2007Q3

REPORT INFORMATION
  Report Type: 
  Country: None (occurrence: None)
  Receive Date: 20070904
  Receipt Date: 20070904
  Transmission Date: 20080115
  Serious: Yes (Hospitalization)
  Sender: FDA-Public Use
  Company Number: None

PATIENT
  Age: 62 Year
  Sex: Male
  Weight: 92.0802 kg

DRUGS (1)
  1. ACTOS [Suspect]
     Indication: DIABETES MELLITUS
     Dosage: 15/850  BID  PO
     Route: 048
     Dates: start: 20060516, end: 20070831

REACTIONS (1)
  - ACUTE MYOCARDIAL INFARCTION [None]
